FAERS Safety Report 8778661 (Version 1)
Quarter: 2012Q4

REPORT INFORMATION
  Report Type: 
  Country: DK (occurrence: CA)
  Receive Date: 20120912
  Receipt Date: 20120912
  Transmission Date: 20130627
  Serious: Yes (Other)
  Sender: FDA-Public Use
  Company Number: CA-FRI-1000038509

PATIENT
  Sex: Female

DRUGS (1)
  1. ESCITALOPRAM [Suspect]
     Dosage: 15 mg
     Route: 048
     Dates: start: 201009

REACTIONS (5)
  - Choking [Recovered/Resolved]
  - Dry mouth [Recovered/Resolved]
  - Dry throat [Recovered/Resolved]
  - Dysphagia [Recovered/Resolved]
  - Panic reaction [Recovered/Resolved]
